FAERS Safety Report 4951487-7 (Version None)
Quarter: 2006Q1

REPORT INFORMATION
  Report Type: 
  Country: None (occurrence: None)
  Receive Date: 20060323
  Receipt Date: 20060228
  Transmission Date: 20060701
  Serious: Yes (Other)
  Sender: FDA-Public Use
  Company Number: PHEH2006US02787

PATIENT
  Age: 45 Year
  Sex: Female

DRUGS (5)
  1. ZOMETA [Suspect]
     Indication: METASTASES TO BONE
     Dosage: 4 MG, EVERY MONTH
     Dates: start: 20020715, end: 20051219
  2. PACLITAXEL [Concomitant]
  3. ADRIAMYCIN PFS [Concomitant]
     Indication: BREAST CANCER
     Dosage: EVERY 3 DAYS X 4
     Dates: start: 20000101, end: 20000301
  4. CYTOXAN [Concomitant]
     Indication: BREAST CANCER
     Dosage: EVERY 3 DAYS X 4
     Dates: start: 20000101, end: 20000301
  5. TAXOL [Concomitant]
     Indication: BREAST CANCER
     Dosage: 140 MG WEEKLY
     Dates: start: 20020118, end: 20050408

REACTIONS (5)
  - BONE DEBRIDEMENT [None]
  - BONE DISORDER [None]
  - OSTEONECROSIS [None]
  - SOFT TISSUE INFECTION [None]
  - TOOTH EXTRACTION [None]
